FAERS Safety Report 4911659-4 (Version None)
Quarter: 2006Q1

REPORT INFORMATION
  Report Type: 
  Country: None (occurrence: None)
  Receive Date: 20060213
  Receipt Date: 20060202
  Transmission Date: 20060701
  Serious: Yes (Disabling, Other)
  Sender: FDA-Public Use
  Company Number: 2006005984

PATIENT
  Age: 58 Year
  Sex: Female

DRUGS (6)
  1. CELEBREX [Suspect]
     Indication: ARTHRITIS
     Dosage: 200 MG (200 MG, 1 IN 1 D)
     Dates: start: 20050101, end: 20051201
  2. NEURONTIN [Suspect]
     Indication: NEURALGIA
     Dosage: 600 MG (300 MG,2 IN 1 D)
     Dates: start: 20060101
  3. LYRICA [Suspect]
     Indication: NEURALGIA
     Dosage: 150 MG (50 MG,3 IN 1 D)
     Dates: start: 20051201, end: 20051201
  4. TRAMADOL [Concomitant]
  5. VERAPAMIL [Concomitant]
  6. THYROID TAB [Concomitant]

REACTIONS (14)
  - ABASIA [None]
  - ACTIVITIES OF DAILY LIVING IMPAIRED [None]
  - CONSTIPATION [None]
  - DRUG INEFFECTIVE [None]
  - FEELING ABNORMAL [None]
  - FIBROMYALGIA [None]
  - GASTROINTESTINAL PAIN [None]
  - HEADACHE [None]
  - INSOMNIA [None]
  - MALAISE [None]
  - SOMNOLENCE [None]
  - STOMACH DISCOMFORT [None]
  - TREATMENT NONCOMPLIANCE [None]
  - WEIGHT INCREASED [None]
